FAERS Safety Report 8809126 (Version 2)
Quarter: 2012Q4

REPORT INFORMATION
  Report Type: Spontaneous
  Country: US (occurrence: None)
  Receive Date: 20120920
  Receipt Date: 20121107
  Transmission Date: 20130627
  Serious: Yes (Other)
  Sender: FDA-Public Use
  Company Number: 2012MA011291

PATIENT
  Age: 35 Year
  Sex: Female

DRUGS (1)
  1. CITALOPRAM HYDROBROMIDE [Suspect]
     Indication: ANXIETY
     Route: 048
     Dates: start: 2006

REACTIONS (6)
  - Suicidal ideation [None]
  - Off label use [None]
  - Weight increased [None]
  - Menstrual disorder [None]
  - Stress [None]
  - Amenorrhoea [None]
